FAERS Safety Report 9490742 (Version 1)
Quarter: 2013Q3

REPORT INFORMATION
  Report Type: Spontaneous
  Country: GB (occurrence: None)
  Receive Date: 20130826
  Receipt Date: 20130826
  Transmission Date: 20140515
  Serious: Yes (Other)
  Sender: FDA-Public Use
  Company Number: GER/UKI/13/0034146

PATIENT
  Sex: Male

DRUGS (8)
  1. ZOLEDRONIC ACID (ZOLEDRONIC ACID) [Suspect]
     Indication: OSTEOPOROSIS
     Dosage: (NOT OTHERWISE SPECIFIED)
     Route: 042
     Dates: start: 201204, end: 201204
  2. CALCICHEW D3 (LEKOVIT CA) [Concomitant]
  3. CLOPIDOGREL (CLOPIDOGREL) [Concomitant]
  4. LOSARTAN (LOSARTAN) [Concomitant]
  5. OMEPRAZOLE (OMEPRAZOLE) [Concomitant]
  6. PARACETAMOL (PARACETAMOL) [Concomitant]
  7. PREDNISOLONE (PREDNISOLONE) [Concomitant]
  8. SOLIFENACIN [Concomitant]

REACTIONS (1)
  - Mouth haemorrhage [None]
